FAERS Safety Report 6182771-X (Version None)
Quarter: 2009Q2

REPORT INFORMATION
  Report Type: 
  Country: None (occurrence: None)
  Receive Date: 20090507
  Receipt Date: 20090501
  Transmission Date: 20091009
  Serious: Yes (Death)
  Sender: FDA-Public Use
  Company Number: US-CELGENEUS-163-20785-09050066

PATIENT
  Sex: Female

DRUGS (2)
  1. THALOMID [Suspect]
     Route: 048
     Dates: start: 20071101, end: 20071201
  2. THALOMID [Suspect]
     Dosage: 150 MG
     Route: 048
     Dates: start: 20071001, end: 20071101

REACTIONS (1)
  - LUNG NEOPLASM MALIGNANT [None]
